FAERS Safety Report 18202936 (Version 1)
Quarter: 2020Q3

REPORT INFORMATION
  Report Type: Spontaneous
  Country: JP (occurrence: JP)
  Receive Date: 20200827
  Receipt Date: 20200827
  Transmission Date: 20201103
  Serious: Yes (Other)
  Sender: FDA-Public Use
  Company Number: JP-PFIZER INC-2020327302

PATIENT
  Age: 80 Year
  Sex: Female

DRUGS (3)
  1. RHEUMATREX [Suspect]
     Active Substance: METHOTREXATE SODIUM
     Dosage: 1 DF
     Route: 048
  2. RHEUMATREX [Suspect]
     Active Substance: METHOTREXATE SODIUM
     Indication: RHEUMATOID ARTHRITIS
     Dosage: UNK (MORE THAN 2 TABLETS)
  3. RHEUMATREX [Suspect]
     Active Substance: METHOTREXATE SODIUM
     Dosage: 2 DF, WEEKLY (EVERY SUNDAY)
     Route: 048

REACTIONS (6)
  - Arthralgia [Unknown]
  - Foot deformity [Unknown]
  - Hand deformity [Not Recovered/Not Resolved]
  - Joint instability [Unknown]
  - Rheumatoid arthritis [Unknown]
  - Blood immunoglobulin G increased [Unknown]
